FAERS Safety Report 8848322 (Version 2)
Quarter: 2012Q4

REPORT INFORMATION
  Report Type: 
  Country: JP (occurrence: JP)
  Receive Date: 20121019
  Receipt Date: 20121104
  Transmission Date: 20130627
  Serious: Yes (Hospitalization)
  Sender: FDA-Public Use
  Company Number: JP-AMGEN-JPNSP2012060610

PATIENT
  Age: 74 Year
  Sex: Female
  Weight: 46 kg

DRUGS (8)
  1. RANMARK [Suspect]
     Indication: HYPOCALCAEMIA
     Route: 058
     Dates: start: 20120705, end: 20120705
  2. CARBOPLATIN [Suspect]
     Dosage: Unknown
     Route: 065
  3. ALIMTA [Concomitant]
     Dosage: Unknown
     Route: 065
  4. AVASTIN [Concomitant]
     Dosage: Unknown
     Route: 065
  5. PANVITAN                           /07504101/ [Concomitant]
     Dosage: The morning
     Route: 048
     Dates: start: 20120412
  6. ASPARA-CA [Concomitant]
     Route: 048
     Dates: start: 20120531
  7. MAGLAX [Concomitant]
     Dosage: MA
     Route: 048
     Dates: start: 20120428
  8. PURSENNID /00142207/ [Concomitant]
     Dosage: As needed
     Route: 048

REACTIONS (2)
  - Hypocalcaemia [Recovered/Resolved]
  - Hyponatraemia [Recovered/Resolved]
